FAERS Safety Report 5693103-5 (Version None)
Quarter: 2008Q2

REPORT INFORMATION
  Report Type: 
  Country: None (occurrence: None)
  Receive Date: 20080402
  Receipt Date: 20080402
  Transmission Date: 20081010
  Serious: Yes (Hospitalization)
  Sender: FDA-Public Use
  Company Number: None

PATIENT
  Sex: Female
  Weight: 84.3 kg

DRUGS (2)
  1. RITUXIMAB (MOAB C2B8 ANTI CD 20, CHIMERIC) [Suspect]
  2. TEMOZOLOMIDE [Suspect]
     Dosage: 1450 MG

REACTIONS (18)
  - ASTHENIA [None]
  - BALANCE DISORDER [None]
  - BLOOD CULTURE POSITIVE [None]
  - CATHETER RELATED INFECTION [None]
  - CATHETER THROMBOSIS [None]
  - DEPRESSED MOOD [None]
  - FATIGUE [None]
  - GAIT DISTURBANCE [None]
  - INFLAMMATION [None]
  - LOBAR PNEUMONIA [None]
  - NEUTROPENIA [None]
  - PAINFUL RESPIRATION [None]
  - PLATELET COUNT DECREASED [None]
  - PULMONARY OEDEMA [None]
  - PYREXIA [None]
  - SEPSIS [None]
  - SPEECH DISORDER [None]
  - STAPHYLOCOCCAL INFECTION [None]
